FAERS Safety Report 5620022-2 (Version None)
Quarter: 2008Q1

REPORT INFORMATION
  Report Type: 
  Country: None (occurrence: None)
  Receive Date: 20080208
  Receipt Date: 20080103
  Transmission Date: 20080703
  Serious: No
  Sender: FDA-Public Use
  Company Number: US-ABBOTT-08P-163-0432357-00

PATIENT
  Sex: Female
  Weight: 99.426 kg

DRUGS (15)
  1. KALETRA [Suspect]
     Indication: HIV INFECTION
     Route: 048
     Dates: start: 20060401, end: 20071001
  2. KALETRA [Suspect]
     Route: 048
     Dates: start: 20050101, end: 20060401
  3. LAMIVUDINE + ZIDOVUDINE [Concomitant]
     Indication: HIV INFECTION
     Dates: start: 20050101, end: 20060401
  4. TEMAZEPAM [Concomitant]
     Indication: DRUG USE FOR UNKNOWN INDICATION
  5. HYDROCHLOROTHIAZIDE [Concomitant]
     Indication: HYPERTENSION
  6. METOPROLOL TARTRATE [Concomitant]
     Indication: HYPERTENSION
  7. ESCITALOPRAM OXALATE [Concomitant]
     Indication: DEPRESSION
  8. CITALOPRAM HYDROBROMIDE [Concomitant]
     Indication: DEPRESSION
  9. IBUPROFEN [Concomitant]
     Indication: PAIN
  10. PARACETAMOL [Concomitant]
     Indication: PAIN
  11. TYLOX [Concomitant]
     Indication: PAIN
  12. OMEPRAZOLE [Concomitant]
     Indication: GASTROOESOPHAGEAL REFLUX DISEASE
  13. PANTOPRAZOLE [Concomitant]
     Indication: GASTROOESOPHAGEAL REFLUX DISEASE
  14. ATRIPLA [Concomitant]
     Indication: HIV INFECTION
     Dates: start: 20071001
  15. TRUVADA [Concomitant]
     Indication: HIV INFECTION
     Dates: start: 20060401, end: 20071001

REACTIONS (6)
  - ARTHRALGIA [None]
  - DEPRESSION [None]
  - DRUG INEFFECTIVE [None]
  - LIPODYSTROPHY ACQUIRED [None]
  - RENAL IMPAIRMENT [None]
  - THYROID NEOPLASM [None]
